FAERS Safety Report 7879013-3 (Version None)
Quarter: 2011Q4

REPORT INFORMATION
  Report Type: 
  Country: None (occurrence: None)
  Receive Date: 20111101
  Receipt Date: 20111025
  Transmission Date: 20120403
  Serious: Yes (Other)
  Sender: FDA-Public Use
  Company Number: PHHY2010SG80842

PATIENT
  Sex: Male

DRUGS (3)
  1. GLEEVEC [Suspect]
     Indication: CHRONIC MYELOID LEUKAEMIA
     Dosage: 100 MG, UNK
     Dates: start: 20071116
  2. GLEEVEC [Suspect]
     Dosage: 400 MG DAILY
     Dates: start: 20091201, end: 20111008
  3. SIMVASTATIN [Concomitant]
     Dosage: 5 MG, UNK

REACTIONS (11)
  - FATIGUE [None]
  - SWOLLEN TONGUE [None]
  - TONGUE DISCOLOURATION [None]
  - PAIN [None]
  - MUCOSAL INFLAMMATION [None]
  - TONGUE ULCERATION [None]
  - LIP PAIN [None]
  - GLOSSODYNIA [None]
  - MOUTH ULCERATION [None]
  - TONGUE DISORDER [None]
  - TONGUE DRY [None]
